FAERS Safety Report 7537038-1 (Version None)
Quarter: 2011Q2

REPORT INFORMATION
  Report Type: 
  Country: None (occurrence: None)
  Receive Date: 20110609
  Receipt Date: 20110527
  Transmission Date: 20111010
  Serious: Yes (Hospitalization)
  Sender: FDA-Public Use
  Company Number: PHHY2011JP47068

PATIENT
  Sex: Male

DRUGS (4)
  1. CANDESARTAN CILEXETIL [Concomitant]
  2. ADALAT CC [Concomitant]
  3. ATELEC [Concomitant]
     Route: 048
  4. RASILEZ [Suspect]
     Indication: HYPERTENSION
     Route: 048

REACTIONS (5)
  - BRADYCARDIA [None]
  - HEPATIC FUNCTION ABNORMAL [None]
  - RENAL IMPAIRMENT [None]
  - BLOOD POTASSIUM INCREASED [None]
  - CONCOMITANT DISEASE AGGRAVATED [None]
